FAERS Safety Report 8861029 (Version 1)
Quarter: 2012Q4

REPORT INFORMATION
  Report Type: Spontaneous
  Country: IN (occurrence: None)
  Receive Date: 20121022
  Receipt Date: 20121022
  Transmission Date: 20130627
  Serious: Yes (Other)
  Sender: FDA-Public Use
  Company Number: FK201203068

PATIENT
  Age: 65 Year
  Sex: Female

DRUGS (2)
  1. PROTAMINE [Suspect]
     Indication: ANTICOAGULANT THERAPY
     Route: 042
  2. HEPARIN (HEPARIN) [Concomitant]

REACTIONS (2)
  - Thrombosis in device [None]
  - Thrombosis in device [None]
